FAERS Safety Report 4823592-7 (Version None)
Quarter: 2005Q4

REPORT INFORMATION
  Report Type: 
  Country: None (occurrence: None)
  Receive Date: 20051107
  Receipt Date: 20051020
  Transmission Date: 20060501
  Serious: Yes (Hospitalization)
  Sender: FDA-Public Use
  Company Number: 107861ISR

PATIENT
  Age: 75 Year
  Sex: Male

DRUGS (2)
  1. FLUTAMIDE [Suspect]
     Route: 048
     Dates: start: 20050701
  2. LHRH-AGONIST [Suspect]
     Indication: PROSTATE CANCER
     Dates: end: 20050101

REACTIONS (2)
  - DYSPNOEA [None]
  - GYNAECOMASTIA [None]
